FAERS Safety Report 8478914-5 (Version None)
Quarter: 2012Q2

REPORT INFORMATION
  Report Type: 
  Country: None (occurrence: None)
  Receive Date: 20120629
  Receipt Date: 20120618
  Transmission Date: 20120825
  Serious: Yes (Life-Threatening, Hospitalization)
  Sender: FDA-Public Use
  Company Number: JP-ROCHE-768804

PATIENT
  Sex: Female

DRUGS (48)
  1. ACTEMRA [Suspect]
     Route: 041
     Dates: start: 20090828, end: 20090828
  2. ACTEMRA [Suspect]
     Route: 041
     Dates: start: 20090925, end: 20090925
  3. ACTEMRA [Suspect]
     Route: 041
     Dates: start: 20091120, end: 20091120
  4. METHYLPREDNISOLONE [Suspect]
     Route: 048
  5. DEXAMETHASONE SODIUM PHOSPHATE [Suspect]
     Indication: PRODUCT USED FOR UNKNOWN INDICATION
     Dosage: DRUG: DECADRON
     Route: 041
     Dates: start: 20090207, end: 20090207
  6. TACROLIMUS AND TACROLIMUS [Suspect]
     Indication: RHEUMATOID ARTHRITIS
     Dosage: DRUG: PROGRAF(TACROLIMUS HYDRATE)
     Route: 048
  7. BROMFENAC SODIUM [Concomitant]
     Indication: HERPES SIMPLEX OPHTHALMIC
     Dosage: DRUG:BRONUCK(BROMFENAC SODIUM HYDRATE), DOSE FORM: EYE DROP,TAKEN AS NEEDED
     Route: 047
  8. FAMOTIDINE [Concomitant]
     Route: 048
  9. CARVEDILOL [Concomitant]
     Indication: HYPERTENSION
     Route: 048
  10. OLMESARTAN MEDOXOMIL [Concomitant]
     Indication: HYPERTENSION
     Route: 048
  11. SULFAMETHOXAZOLE AND TRIMETHOPRIM [Concomitant]
     Route: 048
  12. AMARYL [Concomitant]
     Indication: DIABETES MELLITUS
     Route: 048
  13. ACTEMRA [Suspect]
     Route: 041
     Dates: start: 20091023, end: 20091023
  14. ACTEMRA [Suspect]
     Route: 041
     Dates: start: 20100108, end: 20100108
  15. ACTEMRA [Suspect]
     Dosage: DOSAGE IS UNCERTAIN
     Route: 041
  16. NEUROTROPIN [Concomitant]
     Dosage: INTRAVENOUS (NOT OTHERWISE SPECIFIED), TAKEN AS NEEDED
     Route: 042
  17. VOLTAREN [Concomitant]
     Dosage: DRUG: DICLOFENAC SODIUM, TAKEN AS NEEDED, DOSE FORM:SUPPOSITORIAE RECTALEY
     Route: 054
  18. BREDININ [Concomitant]
     Indication: RHEUMATOID ARTHRITIS
     Route: 048
     Dates: end: 20100610
  19. FLURBIPROFEN [Concomitant]
     Indication: RHEUMATOID ARTHRITIS
     Dosage: DRUG REPORTED AS ADOFEED
     Route: 061
  20. MUCODYNE [Concomitant]
     Route: 048
  21. METHYLPREDNISOLONE [Suspect]
     Indication: RHEUMATOID ARTHRITIS
     Dosage: DRUG: MEDROL
     Route: 048
  22. DEXAMETHASONE SODIUM PHOSPHATE [Suspect]
     Dosage: INFUSION RATE DECREASED.
     Route: 041
  23. METHYLPREDNISOLONE [Suspect]
     Route: 048
  24. METHYLPREDNISOLONE [Suspect]
     Route: 048
     Dates: start: 20090410, end: 20090730
  25. CELECOXIB [Concomitant]
     Indication: RHEUMATOID ARTHRITIS
     Dosage: DRUG: CELECOX
     Route: 048
  26. LIPITOR [Concomitant]
     Indication: HYPERLIPIDAEMIA
     Dosage: DRUG: ATORVASTATIN CALCIUM
     Route: 048
  27. LASIX [Concomitant]
     Dosage: DOSE FORM: MINUTE GRAIN
     Route: 048
     Dates: start: 20090403, end: 20090409
  28. HYALEIN [Concomitant]
     Dosage: TAKEN AS NEEDED, DOSE FORM:EYE DROP
     Route: 047
  29. VFEND [Concomitant]
     Route: 048
     Dates: end: 20100525
  30. ACTEMRA [Suspect]
     Route: 041
     Dates: start: 20090508, end: 20090508
  31. ACTEMRA [Suspect]
     Route: 041
     Dates: start: 20091211, end: 20091211
  32. METHYLPREDNISOLONE [Suspect]
     Route: 048
  33. TACROLIMUS AND TACROLIMUS [Suspect]
     Route: 048
     Dates: start: 20090327, end: 20090410
  34. VOLTAREN-XR [Concomitant]
     Indication: RHEUMATOID ARTHRITIS
     Route: 048
  35. ACTEMRA [Suspect]
     Indication: RHEUMATOID ARTHRITIS
     Route: 041
     Dates: start: 20090415, end: 20100611
  36. ACTEMRA [Suspect]
     Route: 041
     Dates: start: 20090605, end: 20090605
  37. ACTEMRA [Suspect]
     Route: 041
     Dates: start: 20090703, end: 20090703
  38. ACTEMRA [Suspect]
     Route: 041
     Dates: start: 20090731, end: 20090731
  39. METHYLPREDNISOLONE [Suspect]
     Route: 048
     Dates: start: 20090731, end: 20090923
  40. ZOVIRAX [Concomitant]
     Indication: HERPES SIMPLEX OPHTHALMIC
     Dosage: DOSE FORM;EYE DROP, TAKEN AS NEEDED
     Route: 047
  41. ELCITONIN [Concomitant]
     Indication: OSTEOPOROSIS
     Dosage: DRUG: ELCITONIN INJ.20S(ELCATONIN)
     Route: 030
  42. VOLTAREN [Concomitant]
     Dosage: DOSE FORM:JELLY, TAKEN AS NEEDED,DICLOFENAC SODIUM
     Route: 054
  43. VOLTAREN [Concomitant]
     Dosage: DOSE FORM:JELLY, TAKEN AS NEEDED,DICLOFENAC SODIUM
     Route: 003
  44. OPALMON [Concomitant]
     Dosage: DRUG: LIMAPROST ALFADEX
     Route: 048
  45. ACTEMRA [Suspect]
     Dosage: DOSAGE IS UNCERTAIN
     Route: 041
     Dates: start: 20100514, end: 20100611
  46. METHYLPREDNISOLONE [Suspect]
     Route: 048
     Dates: start: 20090801, end: 20090924
  47. PAXIL [Concomitant]
     Indication: DEPRESSION
     Dosage: DRUG: PAROXETINE HYDROCHLORIDE HYDRATE
     Route: 048
  48. LASIX [Concomitant]
     Route: 048

REACTIONS (10)
  - DISSEMINATED INTRAVASCULAR COAGULATION [None]
  - BRONCHITIS [None]
  - SEPTIC SHOCK [None]
  - NEPHROLITHIASIS [None]
  - CARDIAC FAILURE [None]
  - LUNG DISORDER [None]
  - ABSCESS LIMB [None]
  - PERINEPHRIC ABSCESS [None]
  - UPPER RESPIRATORY TRACT INFLAMMATION [None]
  - SYSTEMIC INFLAMMATORY RESPONSE SYNDROME [None]
